FAERS Safety Report 15661959 (Version 1)
Quarter: 2018Q4

REPORT INFORMATION
  Report Type: Spontaneous
  Country: AU (occurrence: AU)
  Receive Date: 20181127
  Receipt Date: 20181127
  Transmission Date: 20190205
  Serious: Yes (Other)
  Sender: FDA-Public Use
  Company Number: AU-ELI_LILLY_AND_COMPANY-AU201811010742

PATIENT
  Age: 22 Year
  Sex: Female

DRUGS (1)
  1. CYMBALTA [Suspect]
     Active Substance: DULOXETINE HYDROCHLORIDE
     Indication: PRODUCT USED FOR UNKNOWN INDICATION
     Dosage: UNK, UNKNOWN
     Route: 065

REACTIONS (7)
  - Withdrawal syndrome [Unknown]
  - Suicidal ideation [Unknown]
  - Insomnia [Unknown]
  - Hypoaesthesia [Unknown]
  - Screaming [Unknown]
  - Mental disorder [Unknown]
  - Pain [Unknown]

NARRATIVE: CASE EVENT DATE: 2015
